FAERS Safety Report 16942667 (Version 2)
Quarter: 2019Q4

REPORT INFORMATION
  Report Type: Spontaneous
  Country: US (occurrence: US)
  Receive Date: 20191021
  Receipt Date: 20191021
  Transmission Date: 20200122
  Serious: Yes (Hospitalization, Other)
  Sender: FDA-Public Use
  Company Number: US-GILEAD-2019-0433770

PATIENT
  Age: 75 Year
  Sex: Male

DRUGS (1)
  1. RANEXA [Suspect]
     Active Substance: RANOLAZINE
     Indication: PRODUCT USED FOR UNKNOWN INDICATION
     Dosage: 500 MG, BID
     Route: 048

REACTIONS (4)
  - Wrong technique in product usage process [Unknown]
  - Arterial stent insertion [Unknown]
  - Angioplasty [Unknown]
  - Arterial bypass occlusion [Unknown]

NARRATIVE: CASE EVENT DATE: 201910
